FAERS Safety Report 9800956 (Version 3)
Quarter: 2014Q1

REPORT INFORMATION
  Report Type: Spontaneous
  Country: US (occurrence: US)
  Receive Date: 20140107
  Receipt Date: 20140310
  Transmission Date: 20141002
  Serious: Yes (Death)
  Sender: FDA-Public Use
  Company Number: US-BRISTOL-MYERS SQUIBB COMPANY-19958438

PATIENT
  Age: 42 Year
  Sex: Female

DRUGS (9)
  1. ABILIFY [Suspect]
     Indication: DEPRESSION
     Route: 048
     Dates: start: 20121109
  2. SYMBICORT [Concomitant]
     Dosage: 2 PUFFS
  3. CRESTOR [Concomitant]
  4. CYMBALTA [Concomitant]
  5. NEXIUM [Concomitant]
  6. LEVEMIR [Concomitant]
  7. NOVOLOG [Concomitant]
  8. METFORMIN [Concomitant]
     Dosage: 1 DF=500 NO UNITS
  9. VICTOZA [Concomitant]

REACTIONS (1)
  - Death [Fatal]
